FAERS Safety Report 4561086-7 (Version None)
Quarter: 2005Q1

REPORT INFORMATION
  Report Type: 
  Country: None (occurrence: None)
  Receive Date: 20050126
  Receipt Date: 20041207
  Transmission Date: 20050727
  Serious: No
  Sender: FDA-Public Use
  Company Number: US-BRISTOL-MYERS SQUIBB COMPANY-12788469

PATIENT
  Age: 57 Year
  Sex: Female
  Weight: 61 kg

DRUGS (7)
  1. GLUCOPHAGE [Suspect]
     Indication: DIABETES MELLITUS
     Dosage: 500 MG IN AM, 1000 MG IN PM
     Route: 048
     Dates: start: 19990101
  2. ALTACE [Concomitant]
  3. ZOCOR [Concomitant]
  4. MULTIVITAMIN [Concomitant]
  5. LYSINE [Concomitant]
  6. ASPIRIN [Concomitant]
  7. ATENOLOL [Concomitant]

REACTIONS (1)
  - GLYCOSYLATED HAEMOGLOBIN INCREASED [None]
